FAERS Safety Report 9738787 (Version 1)
Quarter: 2013Q4

REPORT INFORMATION
  Report Type: Spontaneous
  Country: US (occurrence: US)
  Receive Date: 20131209
  Receipt Date: 20131209
  Transmission Date: 20140711
  Serious: No
  Sender: FDA-Public Use
  Company Number: US-PFIZER INC-2013344825

PATIENT
  Age: 67 Year
  Sex: Female
  Weight: 70.3 kg

DRUGS (8)
  1. BOSULIF [Suspect]
     Indication: CHRONIC MYELOID LEUKAEMIA
     Dosage: 500 MG, 1X/DAY
     Route: 048
     Dates: start: 20130318
  2. CENTRUM SILVER [Concomitant]
     Dosage: UNK, 1X/DAY
  3. VITAMIN C [Concomitant]
     Dosage: 1000 MG, 1X/DAY
  4. CALCIUM 600+ VIT D [Concomitant]
     Dosage: UNK, 2X/DAY
  5. VITAMIN B12 [Concomitant]
     Dosage: 1000 UG, 1X/DAY
  6. ACYCLOVIR [Concomitant]
     Dosage: 800 MG, 1X/DAY
  7. NEUMEGA [Concomitant]
     Dosage: 0.2 CC, 5X/WEEK
  8. NEUPOGEN [Concomitant]
     Dosage: UNK, 2X/WEEK (PREFILLED SYRINGE)

REACTIONS (3)
  - Diarrhoea [Not Recovered/Not Resolved]
  - Platelet count decreased [Not Recovered/Not Resolved]
  - Haemoglobin decreased [Not Recovered/Not Resolved]
